FAERS Safety Report 25421723 (Version 1)
Quarter: 2025Q2

REPORT INFORMATION
  Report Type: Spontaneous
  Country: US (occurrence: US)
  Receive Date: 20250611
  Receipt Date: 20250611
  Transmission Date: 20250716
  Serious: Yes (Life-Threatening, Hospitalization, Other)
  Sender: HIKMA
  Company Number: US-MLMSERVICE-20240614-PI099769-00221-1

PATIENT
  Age: 84 Year
  Sex: Female

DRUGS (1)
  1. METOPROLOL [Suspect]
     Active Substance: METOPROLOL
     Indication: Product used for unknown indication
     Route: 065

REACTIONS (3)
  - BRASH syndrome [Recovering/Resolving]
  - Acidosis hyperchloraemic [Recovering/Resolving]
  - Circulatory collapse [Recovering/Resolving]
